FAERS Safety Report 11713267 (Version 1)
Quarter: 2015Q4

REPORT INFORMATION
  Report Type: Spontaneous
  Country: US (occurrence: US)
  Receive Date: 20151109
  Receipt Date: 20151109
  Transmission Date: 20160304
  Serious: Yes (Hospitalization)
  Sender: FDA-Public Use
  Company Number: US-AUROBINDO-AUR-APL-2015-09025

PATIENT
  Age: 9 Year
  Sex: Female

DRUGS (10)
  1. SERTRALINE [Suspect]
     Active Substance: SERTRALINE HYDROCHLORIDE
     Dosage: 12.5 MG, UNK
     Route: 065
  2. HYOSCYAMINE. [Suspect]
     Active Substance: HYOSCYAMINE
     Indication: DIARRHOEA
     Dosage: 1 DF, TWO TIMES A DAY
     Route: 048
  3. HYOSCYAMINE. [Suspect]
     Active Substance: HYOSCYAMINE
     Indication: ABDOMINAL PAIN UPPER
  4. MONTELUKAST [Concomitant]
     Active Substance: MONTELUKAST SODIUM
     Indication: PRODUCT USED FOR UNKNOWN INDICATION
     Dosage: 5 MG, UNK
     Route: 065
  5. NITAZOXANIDE [Concomitant]
     Active Substance: NITAZOXANIDE
     Indication: DIARRHOEA
     Route: 065
  6. SERTRALINE [Suspect]
     Active Substance: SERTRALINE HYDROCHLORIDE
     Indication: PRODUCT USED FOR UNKNOWN INDICATION
     Dosage: 6.25 MG, UNK
     Route: 048
  7. DIPHENHYDRAMINE. [Suspect]
     Active Substance: DIPHENHYDRAMINE
     Indication: PRODUCT USED FOR UNKNOWN INDICATION
     Dosage: 1 DF, AT BED TIME
     Route: 048
  8. OMEPRAZOLE. [Concomitant]
     Active Substance: OMEPRAZOLE
     Indication: PRODUCT USED FOR UNKNOWN INDICATION
     Dosage: 20 MG, UNK
     Route: 065
  9. ACETAMINOPHEN. [Concomitant]
     Active Substance: ACETAMINOPHEN
     Indication: PRODUCT USED FOR UNKNOWN INDICATION
     Dosage: 10 ML, EVERY FOUR HOUR
     Route: 048
  10. ONDANSETRON 4MG/2MG HOSPIRA [Suspect]
     Active Substance: ONDANSETRON
     Indication: PRODUCT USED FOR UNKNOWN INDICATION
     Dosage: 1 TABLET BY MOUTH EVERY 6 H
     Route: 065

REACTIONS (37)
  - Hallucination [Recovering/Resolving]
  - Flushing [Recovering/Resolving]
  - Dehydration [Recovering/Resolving]
  - Anticholinergic syndrome [Recovering/Resolving]
  - Diarrhoea [Recovering/Resolving]
  - Delirium [Recovering/Resolving]
  - Neutrophil count increased [Recovering/Resolving]
  - Skin discolouration [Recovering/Resolving]
  - Pruritus [Recovering/Resolving]
  - Pyrexia [Recovering/Resolving]
  - Vomiting [Recovering/Resolving]
  - Agitation [Recovering/Resolving]
  - Confusional state [Recovering/Resolving]
  - Dysarthria [Recovering/Resolving]
  - Abnormal behaviour [Recovering/Resolving]
  - Balance disorder [Recovering/Resolving]
  - Clonus [Recovering/Resolving]
  - Vision blurred [Recovering/Resolving]
  - Disorientation [Recovering/Resolving]
  - Platelet count increased [Recovering/Resolving]
  - Dry mouth [Recovering/Resolving]
  - Serotonin syndrome [Recovering/Resolving]
  - Mental status changes [Recovering/Resolving]
  - Headache [Recovering/Resolving]
  - Hallucination, visual [Recovering/Resolving]
  - Blindness transient [Recovering/Resolving]
  - Aphasia [Recovering/Resolving]
  - Abdominal pain upper [Recovering/Resolving]
  - Dry skin [Recovering/Resolving]
  - Sinus tachycardia [Recovering/Resolving]
  - Mydriasis [Recovering/Resolving]
  - Rash [Recovering/Resolving]
  - Lymphocyte count decreased [Recovering/Resolving]
  - Nausea [Recovering/Resolving]
  - Muscle twitching [Recovering/Resolving]
  - Fatigue [Recovering/Resolving]
  - Electrocardiogram QT prolonged [Recovering/Resolving]
